FAERS Safety Report 19455538 (Version 1)
Quarter: 2021Q2

REPORT INFORMATION
  Report Type: Spontaneous
  Country: US (occurrence: US)
  Receive Date: 20210623
  Receipt Date: 20210623
  Transmission Date: 20210717
  Serious: Yes (Hospitalization)
  Sender: FDA-Public Use
  Company Number: None

PATIENT
  Sex: Female

DRUGS (11)
  1. FAMOTIDINE. [Concomitant]
     Active Substance: FAMOTIDINE
  2. TOBRAYCIN [Concomitant]
  3. MYCOPHENOLIC 180 MG DR TAB [Suspect]
     Active Substance: MYCOPHENOLIC ACID
     Indication: RENAL TRANSPLANT
     Route: 048
     Dates: start: 20181005
  4. PREDNISONE. [Concomitant]
     Active Substance: PREDNISONE
  5. CLARTIN [Concomitant]
  6. DORZOLAMIDE OP [Concomitant]
  7. KEFLEX [Concomitant]
     Active Substance: CEPHALEXIN
  8. LATANOPROST. [Concomitant]
     Active Substance: LATANOPROST
  9. ZANTAC [Concomitant]
     Active Substance: RANITIDINE HYDROCHLORIDE
  10. ATORVASTATIN [Concomitant]
     Active Substance: ATORVASTATIN
  11. TACROLIMUS 1MG CAP [Suspect]
     Active Substance: TACROLIMUS
     Indication: RENAL TRANSPLANT
     Route: 048
     Dates: start: 20180825

REACTIONS (2)
  - Pneumonia [None]
  - Therapy interrupted [None]
